FAERS Safety Report 16256275 (Version 3)
Quarter: 2019Q3

REPORT INFORMATION
  Report Type: Spontaneous
  Country: US (occurrence: US)
  Receive Date: 20190430
  Receipt Date: 20190731
  Transmission Date: 20191004
  Serious: No
  Sender: FDA-Public Use
  Company Number: US-PARATEK PHARMACEUTICALS, INC.-2019PTK00009

PATIENT
  Age: 37 Year
  Sex: Female
  Weight: 116.1 kg

DRUGS (4)
  1. NUZYRA [Suspect]
     Active Substance: OMADACYCLINE
     Indication: CHRONIC SINUSITIS
  2. PREDNISONE. [Concomitant]
     Active Substance: PREDNISONE
  3. MICROGESTIN [Concomitant]
     Active Substance: ETHINYL ESTRADIOL\NORETHINDRONE ACETATE
  4. NUZYRA [Suspect]
     Active Substance: OMADACYCLINE
     Indication: BRONCHITIS
     Dosage: 150 MG, 1X/DAY
     Route: 048
     Dates: start: 20190228, end: 2019

REACTIONS (3)
  - Off label use [Recovered/Resolved]
  - Cough [Not Recovered/Not Resolved]
  - Drug dose titration not performed [Recovered/Resolved]

NARRATIVE: CASE EVENT DATE: 20190228
